FAERS Safety Report 22320580 (Version 1)
Quarter: 2023Q2

REPORT INFORMATION
  Report Type: Spontaneous
  Country: GB (occurrence: None)
  Receive Date: 20230515
  Receipt Date: 20230515
  Transmission Date: 20230722
  Serious: Yes (Other)
  Sender: FDA-Public Use
  Company Number: 2023A106076

PATIENT
  Age: 36 Year
  Sex: Female

DRUGS (6)
  1. SYMBICORT [Suspect]
     Active Substance: BUDESONIDE\FORMOTEROL FUMARATE DIHYDRATE
     Indication: Asthma
     Dosage: 2 PUFFS TWICE A DAY;
     Dates: start: 20230401, end: 20230505
  2. BECLOMETHASONE\FORMOTEROL [Suspect]
     Active Substance: BECLOMETHASONE\FORMOTEROL
     Indication: Adverse drug reaction
     Dosage: 200MG TWICE A DAY 2 PUFFS ; ;
     Dates: start: 2023, end: 20230505
  3. AMITRIPTYLINE [Concomitant]
     Active Substance: AMITRIPTYLINE
     Indication: Adverse drug reaction
     Dates: start: 20220101
  4. FEXOFENADINE [Concomitant]
     Active Substance: FEXOFENADINE HYDROCHLORIDE
     Indication: Multiple allergies
     Dates: start: 20220301
  5. MONTELUKAST [Concomitant]
     Active Substance: MONTELUKAST SODIUM
     Indication: Wheezing
     Dates: start: 20220102
  6. PREDNISONE [Concomitant]
     Active Substance: PREDNISONE
     Indication: Allergic cough
     Dates: start: 20230503

REACTIONS (4)
  - Dry mouth [Not Recovered/Not Resolved]
  - Thirst [Recovering/Resolving]
  - Tongue ulceration [Not Recovered/Not Resolved]
  - Tremor [Recovered/Resolved with Sequelae]

NARRATIVE: CASE EVENT DATE: 20230504
